FAERS Safety Report 5167273-1 (Version None)
Quarter: 2006Q4

REPORT INFORMATION
  Report Type: 
  Country: None (occurrence: None)
  Receive Date: 20061129
  Receipt Date: 20061116
  Transmission Date: 20070319
  Serious: Yes (Hospitalization)
  Sender: FDA-Public Use
  Company Number: TCI2006A03783

PATIENT
  Age: 55 Year
  Sex: Male

DRUGS (4)
  1. ACTOS [Suspect]
     Indication: DIABETES MELLITUS NON-INSULIN-DEPENDENT
     Dosage: 30 MG (30 MG, 1 IN 1 D) PER ORAL
     Route: 048
     Dates: start: 20060106, end: 20060904
  2. BASEN TABLETS 0.2 (VOGLIBOSE) [Concomitant]
  3. AMARYL [Concomitant]
  4. METFORMIN HCL [Concomitant]

REACTIONS (11)
  - AUTOIMMUNE HEPATITIS [None]
  - BLOOD LACTATE DEHYDROGENASE INCREASED [None]
  - DIARRHOEA [None]
  - GLYCOSYLATED HAEMOGLOBIN INCREASED [None]
  - HAEMORRHAGIC DIATHESIS [None]
  - HEADACHE [None]
  - HEPATIC NECROSIS [None]
  - HEPATITIS B [None]
  - LIVER DISORDER [None]
  - NASOPHARYNGITIS [None]
  - PYREXIA [None]
